FAERS Safety Report 5647023-2 (Version None)
Quarter: 2008Q1

REPORT INFORMATION
  Report Type: 
  Country: None (occurrence: None)
  Receive Date: 20080303
  Receipt Date: 20080225
  Transmission Date: 20080703
  Serious: Yes (Death, Life-Threatening, Hospitalization)
  Sender: FDA-Public Use
  Company Number: B0510338A

PATIENT
  Age: 57 Year
  Sex: Male

DRUGS (12)
  1. NABUCOX [Suspect]
     Indication: DRUG USE FOR UNKNOWN INDICATION
     Route: 048
     Dates: end: 20070815
  2. PROFENID [Suspect]
     Indication: DRUG USE FOR UNKNOWN INDICATION
     Route: 030
     Dates: start: 20070813, end: 20070815
  3. ACUPAN [Suspect]
     Indication: DRUG USE FOR UNKNOWN INDICATION
     Route: 048
     Dates: start: 20070813, end: 20070815
  4. MIOREL [Suspect]
     Indication: DRUG USE FOR UNKNOWN INDICATION
     Route: 048
     Dates: start: 20070813, end: 20070815
  5. NUROFEN [Suspect]
     Indication: DRUG USE FOR UNKNOWN INDICATION
     Route: 048
     Dates: end: 20070815
  6. ACETAMINOPHEN [Suspect]
     Indication: DRUG USE FOR UNKNOWN INDICATION
     Route: 048
  7. ZALDIAR [Suspect]
     Indication: DRUG USE FOR UNKNOWN INDICATION
     Route: 048
     Dates: end: 20070815
  8. METHOCARBAMOL [Suspect]
     Indication: DRUG USE FOR UNKNOWN INDICATION
     Route: 048
     Dates: end: 20070815
  9. EFFERALGAN CODEINE [Suspect]
     Route: 048
     Dates: end: 20070815
  10. PIROXICAM [Suspect]
     Route: 048
     Dates: end: 20070815
  11. TETRAZEPAM [Suspect]
     Route: 048
  12. AVLOCARDYL [Concomitant]
     Route: 048

REACTIONS (14)
  - ANAEMIA [None]
  - BONE MARROW TOXICITY [None]
  - CARDIAC ARREST [None]
  - CYTOLYTIC HEPATITIS [None]
  - HAEMATOMA [None]
  - HISTIOCYTOSIS HAEMATOPHAGIC [None]
  - INFLAMMATION [None]
  - LUNG DISORDER [None]
  - PAIN [None]
  - PLEURAL EFFUSION [None]
  - PYREXIA [None]
  - RHABDOMYOLYSIS [None]
  - SEPTIC SHOCK [None]
  - THROMBOCYTOPENIA [None]
